FAERS Safety Report 9295595 (Version 2)
Quarter: 2013Q2

REPORT INFORMATION
  Report Type: Spontaneous
  Country: CZ (occurrence: CZ)
  Receive Date: 20130517
  Receipt Date: 20130528
  Transmission Date: 20140414
  Serious: Yes (Other)
  Sender: FDA-Public Use
  Company Number: CZ-SANOFI-AVENTIS-2013SA047936

PATIENT
  Age: 63 Year
  Sex: Female

DRUGS (1)
  1. COROTROPE [Suspect]
     Indication: PRODUCT USED FOR UNKNOWN INDICATION
     Dosage: FREQUENCY: TWICE
     Route: 042
     Dates: start: 20130510, end: 20130510

REACTIONS (2)
  - Medication error [Unknown]
  - Overdose [Unknown]
